FAERS Safety Report 22600996 (Version 2)
Quarter: 2023Q2

REPORT INFORMATION
  Report Type: Other
  Country: CA (occurrence: None)
  Receive Date: 20230614
  Receipt Date: 20230627
  Transmission Date: 20230721
  Serious: Yes (Hospitalization)
  Sender: FDA-Public Use
  Company Number: CA-ROCHE-3365337

PATIENT
  Sex: Female

DRUGS (1)
  1. OCREVUS [Suspect]
     Active Substance: OCRELIZUMAB
     Indication: Primary progressive multiple sclerosis
     Dosage: 300 MG AT DAY 0 AND 14, THEN 600 MG EVERY 6 MONTH
     Route: 042
     Dates: start: 20190322

REACTIONS (7)
  - Bacterial infection [Recovered/Resolved]
  - Deafness unilateral [Recovered/Resolved]
  - Cough [Recovered/Resolved]
  - Bone swelling [Recovered/Resolved]
  - Swelling [Recovered/Resolved]
  - Fatigue [Unknown]
  - Sternal injury [Recovered/Resolved]
